FAERS Safety Report 17228739 (Version 1)
Quarter: 2020Q1

REPORT INFORMATION
  Report Type: Spontaneous
  Country: AU (occurrence: AU)
  Receive Date: 20200103
  Receipt Date: 20200103
  Transmission Date: 20200409
  Serious: Yes (Other)
  Sender: FDA-Public Use
  Company Number: AU-ROCHE-2513883

PATIENT
  Sex: Male
  Weight: 52 kg

DRUGS (10)
  1. METHOTREXATE. [Suspect]
     Active Substance: METHOTREXATE
     Indication: BURKITT^S LYMPHOMA
     Route: 065
     Dates: start: 201906, end: 201910
  2. CYCLOPHOSPHAMIDE. [Suspect]
     Active Substance: CYCLOPHOSPHAMIDE
     Indication: BURKITT^S LYMPHOMA
     Route: 065
     Dates: start: 201906, end: 201910
  3. CYTARABINE. [Suspect]
     Active Substance: CYTARABINE
     Indication: BURKITT^S LYMPHOMA
     Route: 065
     Dates: start: 201906, end: 201910
  4. VINCRISTINE [Suspect]
     Active Substance: VINCRISTINE
     Indication: BURKITT^S LYMPHOMA
     Route: 065
     Dates: start: 201906, end: 201910
  5. MESNA. [Suspect]
     Active Substance: MESNA
     Indication: BURKITT^S LYMPHOMA
     Route: 065
     Dates: start: 201906, end: 201910
  6. RITUXIMAB. [Suspect]
     Active Substance: RITUXIMAB
     Indication: BURKITT^S LYMPHOMA
     Route: 041
     Dates: start: 201906, end: 201910
  7. DOXORUBICIN [Suspect]
     Active Substance: DOXORUBICIN
     Indication: BURKITT^S LYMPHOMA
     Route: 065
     Dates: start: 201906, end: 201910
  8. LEUCOVORIN [FOLINIC ACID] [Suspect]
     Active Substance: LEUCOVORIN
     Indication: BURKITT^S LYMPHOMA
     Route: 065
     Dates: start: 201906, end: 201910
  9. IFOSFAMIDE. [Suspect]
     Active Substance: IFOSFAMIDE
     Indication: BURKITT^S LYMPHOMA
     Route: 065
     Dates: start: 201906, end: 201910
  10. ETOPOSIDE. [Suspect]
     Active Substance: ETOPOSIDE
     Indication: BURKITT^S LYMPHOMA
     Route: 065
     Dates: start: 201906, end: 201910

REACTIONS (4)
  - Cholecystitis chronic [Unknown]
  - Varices oesophageal [Unknown]
  - Portal hypertension [Unknown]
  - Treatment failure [Unknown]
